FAERS Safety Report 17403371 (Version 3)
Quarter: 2020Q1

REPORT INFORMATION
  Report Type: Spontaneous
  Country: CA (occurrence: CA)
  Receive Date: 20200211
  Receipt Date: 20200226
  Transmission Date: 20200409
  Serious: Yes (Hospitalization, Other)
  Sender: FDA-Public Use
  Company Number: CA-UNITED THERAPEUTICS-UNT-2020-002151

PATIENT
  Age: 69 Year
  Sex: Female

DRUGS (1)
  1. REMODULIN [Suspect]
     Active Substance: TREPROSTINIL
     Indication: PULMONARY ARTERIAL HYPERTENSION
     Dosage: 0.032 ?G/KG, CONTINUING
     Route: 041

REACTIONS (13)
  - Feeling jittery [Recovering/Resolving]
  - Fibrin D dimer increased [Unknown]
  - Insomnia [Unknown]
  - Pulmonary oedema [Not Recovered/Not Resolved]
  - Decreased appetite [Recovered/Resolved]
  - Oxygen saturation decreased [Recovering/Resolving]
  - Fluid retention [Unknown]
  - Palpitations [Unknown]
  - Lymphadenopathy mediastinal [Unknown]
  - Dyspnoea [Not Recovered/Not Resolved]
  - Pulmonary veno-occlusive disease [Unknown]
  - Feeling abnormal [Recovering/Resolving]
  - Troponin increased [Unknown]

NARRATIVE: CASE EVENT DATE: 20200206
